FAERS Safety Report 8169715-6 (Version None)
Quarter: 2012Q1

REPORT INFORMATION
  Report Type: 
  Country: None (occurrence: None)
  Receive Date: 20120228
  Receipt Date: 20120224
  Transmission Date: 20120608
  Serious: Yes (Death)
  Sender: FDA-Public Use
  Company Number: JP-JNJFOC-20120105383

PATIENT
  Sex: Female
  Weight: 31 kg

DRUGS (3)
  1. GALANTAMINE HYDROBROMIDE [Suspect]
     Indication: DEMENTIA ALZHEIMER'S TYPE
     Route: 048
     Dates: start: 20110705, end: 20110810
  2. TRAZODONE HYDROCHLORIDE [Suspect]
     Indication: DEMENTIA ALZHEIMER'S TYPE
     Route: 048
     Dates: start: 20110705, end: 20111031
  3. TIAPRIDE HYDROCHLORIDE [Concomitant]
     Route: 065

REACTIONS (1)
  - DEMENTIA ALZHEIMER'S TYPE [None]
